FAERS Safety Report 10715846 (Version 1)
Quarter: 2015Q1

REPORT INFORMATION
  Report Type: Spontaneous
  Country: US (occurrence: None)
  Receive Date: 20150108
  Receipt Date: 20150108
  Transmission Date: 20150721
  Serious: Yes (Other)
  Sender: FDA-Public Use
  Company Number: 409471

PATIENT
  Age: 60 Year
  Sex: Female

DRUGS (9)
  1. BENAZEPRIL HCL (BENAZEPRIL HYDROCHLORIDE) [Concomitant]
  2. LYRICA [Concomitant]
     Active Substance: PREGABALIN
  3. NOVOLIN 70/30 (INSULIN HUMAN) [Concomitant]
  4. NYSTATIN. [Concomitant]
     Active Substance: NYSTATIN
  5. LEVEMIR [Suspect]
     Active Substance: INSULIN DETEMIR
     Indication: TYPE 2 DIABETES MELLITUS
     Dosage: 40 U, QD, SUBCUTANEOUS
     Route: 058
     Dates: start: 2011
  6. AMBIEN [Concomitant]
     Active Substance: ZOLPIDEM TARTRATE
  7. LASIX /00032601/ (FUROSEMIDE) [Concomitant]
  8. CETIRIZINE HCL (CETIRIZINE HYDROCHLORIDE) [Concomitant]
  9. SYNTHROID [Concomitant]
     Active Substance: LEVOTHYROXINE SODIUM

REACTIONS (6)
  - Paraesthesia [None]
  - Hypoaesthesia [None]
  - Rash [None]
  - Blood glucose increased [None]
  - Incorrect product storage [None]
  - Diabetes mellitus inadequate control [None]

NARRATIVE: CASE EVENT DATE: 20140413
